APPROVED DRUG PRODUCT: LAMOTRIGINE
Active Ingredient: LAMOTRIGINE
Strength: 200MG
Dosage Form/Route: TABLET;ORAL
Application: A076388 | Product #004
Applicant: TEVA PHARMACEUTICALS USA INC
Approved: Aug 30, 2006 | RLD: No | RS: No | Type: DISCN